FAERS Safety Report 9672181 (Version 3)
Quarter: 2013Q4

REPORT INFORMATION
  Report Type: Report from Study
  Country: HK (occurrence: HK)
  Receive Date: 20131106
  Receipt Date: 20131119
  Transmission Date: 20140711
  Serious: Yes (Death)
  Sender: FDA-Public Use
  Company Number: HK-B.I. PHARMACEUTICALS,INC./RIDGEFIELD-2013-BI-35570BI

PATIENT
  Age: 44 Year
  Sex: Female
  Weight: 55 kg

DRUGS (6)
  1. BIBW 2992 [Suspect]
     Indication: BREAST CANCER
     Dosage: 30 MG
     Route: 048
     Dates: start: 20130916, end: 20131030
  2. DEXAMETHASONE [Concomitant]
     Indication: METASTASES TO CENTRAL NERVOUS SYSTEM
     Dosage: 4 MG
     Route: 048
     Dates: start: 20131016, end: 20131030
  3. PEPCIDINE [Concomitant]
     Indication: PROPHYLAXIS
     Dosage: 40 MG
     Route: 048
     Dates: start: 20130912, end: 20131030
  4. PEPCIDINE [Concomitant]
     Indication: ABDOMINAL DISCOMFORT
  5. BETAMETHASONE VALERATE OINTMENT [Concomitant]
     Indication: DERMATITIS ACNEIFORM
     Dosage: DAILY DOSE 20PRN
     Dates: start: 20130619, end: 20131030
  6. CROTAMITON CREAM [Concomitant]
     Indication: DERMATITIS ACNEIFORM
     Dates: start: 20130619, end: 20131030

REACTIONS (2)
  - Pneumonia [Fatal]
  - Dyspnoea [Fatal]
